FAERS Safety Report 25217252 (Version 3)
Quarter: 2025Q4

REPORT INFORMATION
  Report Type: Spontaneous
  Country: US (occurrence: US)
  Receive Date: 20250419
  Receipt Date: 20251013
  Transmission Date: 20260117
  Serious: No
  Sender: SANOFI AVENTIS
  Company Number: US-SA-2025SA111242

PATIENT
  Age: 64 Year
  Sex: Male

DRUGS (1)
  1. DUPIXENT [Suspect]
     Active Substance: DUPILUMAB
     Indication: Nasal polyps
     Dosage: 300 MG, QOW
     Route: 058
     Dates: start: 20250218

REACTIONS (9)
  - Nasal congestion [Recovering/Resolving]
  - Rhinorrhoea [Recovering/Resolving]
  - Condition aggravated [Recovering/Resolving]
  - Rhinalgia [Recovering/Resolving]
  - Epistaxis [Recovering/Resolving]
  - Injection site bruising [Unknown]
  - Dry eye [Not Recovered/Not Resolved]
  - Condition aggravated [Not Recovered/Not Resolved]
  - Injection site swelling [Unknown]

NARRATIVE: CASE EVENT DATE: 20250101
